FAERS Safety Report 21605791 (Version 1)
Quarter: 2022Q4

REPORT INFORMATION
  Report Type: Spontaneous
  Country: US (occurrence: None)
  Receive Date: 20221116
  Receipt Date: 20221116
  Transmission Date: 20230113
  Serious: Yes (Hospitalization)
  Sender: FDA-Public Use
  Company Number: None

PATIENT
  Sex: Female
  Weight: 93.7 kg

DRUGS (3)
  1. LOMUSTINE [Suspect]
     Active Substance: LOMUSTINE
     Dates: end: 20221010
  2. PROCARBAZINE [Suspect]
     Active Substance: PROCARBAZINE
     Dates: end: 20221030
  3. VINCRISTINE SULFATE [Suspect]
     Active Substance: VINCRISTINE SULFATE
     Dates: end: 20221107

REACTIONS (9)
  - Nausea [None]
  - Feeling of body temperature change [None]
  - Viral infection [None]
  - Chills [None]
  - Nasal congestion [None]
  - Cough [None]
  - Pancytopenia [None]
  - Neutropenia [None]
  - Respiratory syncytial virus test positive [None]

NARRATIVE: CASE EVENT DATE: 20221109
